FAERS Safety Report 21499225 (Version 1)
Quarter: 2022Q4

REPORT INFORMATION
  Report Type: Spontaneous
  Country: US (occurrence: None)
  Receive Date: 20221023
  Receipt Date: 20221023
  Transmission Date: 20230113
  Serious: Yes (Hospitalization)
  Sender: FDA-Public Use
  Company Number: None

PATIENT
  Sex: Male

DRUGS (4)
  1. CAPECITABINE [Suspect]
     Active Substance: CAPECITABINE
     Dosage: FREQUENCY : TWICE A DAY;?
     Route: 048
  2. depakote er 500 mg tab [Concomitant]
  3. zofran 4 mg tab [Concomitant]
  4. trazodone 50 mg tab [Concomitant]

REACTIONS (3)
  - Pyrexia [None]
  - Hiccups [None]
  - Bacterial infection [None]
